FAERS Safety Report 19185597 (Version 1)
Quarter: 2021Q2

REPORT INFORMATION
  Report Type: Report from Study
  Country: US (occurrence: US)
  Receive Date: 20210427
  Receipt Date: 20210427
  Transmission Date: 20210717
  Serious: Yes (Hospitalization)
  Sender: FDA-Public Use
  Company Number: US-ANTARES PHARMA, INC.-2021-SPO-MX-0842

PATIENT

DRUGS (3)
  1. OTREXUP [Suspect]
     Active Substance: METHOTREXATE
     Indication: RHEUMATOID ARTHRITIS
     Dosage: 25 MG/0.4ML, QWK
     Route: 058
     Dates: start: 202008
  2. OPSUMIT [Suspect]
     Active Substance: MACITENTAN
     Indication: PULMONARY HYPERTENSION
  3. SILDENAFIL. [Suspect]
     Active Substance: SILDENAFIL
     Indication: PULMONARY HYPERTENSION
     Dosage: UNK, TID

REACTIONS (8)
  - Heart rate increased [Not Recovered/Not Resolved]
  - Dyspnoea [Not Recovered/Not Resolved]
  - Constipation [Recovering/Resolving]
  - Fluid retention [Recovering/Resolving]
  - Injection site reaction [Recovering/Resolving]
  - Somnolence [Recovering/Resolving]
  - Pulmonary oedema [Recovering/Resolving]
  - Hypotension [Not Recovered/Not Resolved]
